FAERS Safety Report 9254221 (Version 4)
Quarter: 2015Q3

REPORT INFORMATION
  Report Type: Report from Study
  Country: JP (occurrence: JP)
  Receive Date: 20130425
  Receipt Date: 20150928
  Transmission Date: 20151125
  Serious: Yes (Life-Threatening, Hospitalization, Other)
  Sender: FDA-Public Use
  Company Number: PHHY2013JP039103

PATIENT
  Age: 40 Year
  Sex: Male

DRUGS (74)
  1. CLOZARIL [Suspect]
     Active Substance: CLOZAPINE
     Dosage: 100 MG, QD
     Route: 048
     Dates: start: 20120909, end: 20120910
  2. CLOZARIL [Suspect]
     Active Substance: CLOZAPINE
     Dosage: 125 MG, QD
     Route: 048
     Dates: start: 20130621, end: 20130627
  3. TASMOLIN [Concomitant]
     Active Substance: BIPERIDEN
     Dosage: 4 MG, QD
     Route: 048
     Dates: start: 20130301, end: 20130317
  4. TASMOLIN [Concomitant]
     Active Substance: BIPERIDEN
     Dosage: 2 MG, QD
     Route: 048
     Dates: start: 20130318, end: 20130331
  5. LONASEN [Concomitant]
     Active Substance: BLONANSERIN
     Dosage: 8 MG, QD
     Route: 048
     Dates: start: 20130602, end: 20130609
  6. BARNETIL [Concomitant]
     Active Substance: SULTOPRIDE HYDROCHLORIDE
     Dosage: 600 MG, QD
     Route: 048
     Dates: start: 20121001, end: 20121007
  7. VEGETAMIN A [Concomitant]
     Active Substance: CHLORPROMAZINE HYDROCHLORIDE\PHENOBARBITAL\PROMETHAZINE
     Indication: SCHIZOPHRENIA, PARANOID TYPE
     Dosage: 2 DF, QD
     Route: 065
  8. SEDIEL [Concomitant]
     Active Substance: TANDOSPIRONE
     Indication: SCHIZOPHRENIA
     Dosage: 300 MG, QD
     Route: 048
     Dates: start: 20130502, end: 20140831
  9. CLOZARIL [Suspect]
     Active Substance: CLOZAPINE
     Dosage: 150 MG, QD
     Route: 048
     Dates: start: 20120914, end: 20120916
  10. CLOZARIL [Suspect]
     Active Substance: CLOZAPINE
     Dosage: 600 MG, QD
     Route: 048
     Dates: start: 20121207
  11. CLOZARIL [Suspect]
     Active Substance: CLOZAPINE
     Dosage: 400 MG, QD
     Route: 048
     Dates: start: 20131101, end: 20131128
  12. DEPAKENE [Concomitant]
     Active Substance: VALPROIC ACID
     Dosage: 800 MG, QD
     Route: 048
     Dates: start: 20130502, end: 20130527
  13. MAGMITT [Concomitant]
     Active Substance: MAGNESIUM OXIDE
     Dosage: 2970 MG, QD
     Route: 048
     Dates: start: 20130502, end: 20130812
  14. URIEF [Concomitant]
     Active Substance: SILODOSIN
     Indication: DYSURIA
     Dosage: 4 MG, QD
     Route: 048
  15. ROHYPNOL [Concomitant]
     Active Substance: FLUNITRAZEPAM
     Dosage: 1 MG, QD
     Route: 048
     Dates: start: 20130502, end: 20140831
  16. CLOZARIL [Suspect]
     Active Substance: CLOZAPINE
     Dosage: 12.5 MG, QD
     Route: 048
     Dates: start: 20130513, end: 20130513
  17. DEPAKENE [Concomitant]
     Active Substance: VALPROIC ACID
     Indication: SCHIZOPHRENIA, PARANOID TYPE
     Dosage: 400 MG, QD
     Route: 048
     Dates: start: 20120814, end: 20121014
  18. MAGMITT [Concomitant]
     Active Substance: MAGNESIUM OXIDE
     Dosage: 2920 MG, QD
     Route: 048
     Dates: start: 20121225
  19. GASMOTIN [Concomitant]
     Active Substance: MOSAPRIDE CITRATE
     Dosage: 1500 MG, QD
     Route: 048
     Dates: start: 20130301, end: 20130416
  20. SERENACE [Concomitant]
     Active Substance: HALOPERIDOL
     Dosage: 4.5 MG, QD
     Route: 048
     Dates: start: 20121029, end: 20121104
  21. LONASEN [Concomitant]
     Active Substance: BLONANSERIN
     Dosage: 24 MG, QD
     Route: 048
     Dates: start: 20130502, end: 20130526
  22. LEUCON [Concomitant]
     Indication: PROPHYLAXIS
     Dosage: 60 MG, QD
     Route: 048
     Dates: start: 20130517, end: 20140831
  23. CLOZARIL [Suspect]
     Active Substance: CLOZAPINE
     Dosage: 175 MG, QD
     Route: 048
     Dates: start: 20120917, end: 20120919
  24. CLOZARIL [Suspect]
     Active Substance: CLOZAPINE
     Dosage: 350 MG, QD
     Route: 048
     Dates: start: 20121019, end: 20121025
  25. ROHYPNOL [Concomitant]
     Active Substance: FLUNITRAZEPAM
     Indication: SCHIZOPHRENIA, PARANOID TYPE
     Dosage: 1 MG, QD
     Route: 048
     Dates: end: 20121130
  26. ROHYPNOL [Concomitant]
     Active Substance: FLUNITRAZEPAM
     Dosage: 2 MG, QD
     Route: 048
     Dates: start: 20130301, end: 20130416
  27. GASMOTIN [Concomitant]
     Active Substance: MOSAPRIDE CITRATE
     Dosage: 1500 MG, QD
     Route: 048
     Dates: start: 20130502, end: 20140831
  28. NEMONAPRIDE [Concomitant]
     Active Substance: NEMONAPRIDE
     Indication: PRODUCT USED FOR UNKNOWN INDICATION
     Dosage: 600 MG, QD
     Route: 048
     Dates: start: 20120831, end: 20121111
  29. CONTOMIN [Concomitant]
     Active Substance: CHLORPROMAZINE
     Indication: PRODUCT USED FOR UNKNOWN INDICATION
     Dosage: 100 MG, QD
     Route: 048
     Dates: start: 20120831, end: 20121209
  30. BENZALIN [Concomitant]
     Active Substance: NITRAZEPAM
     Indication: SCHIZOPHRENIA
     Dosage: 10 MG, QD
     Route: 048
     Dates: start: 20130502, end: 20140521
  31. BENZALIN [Concomitant]
     Active Substance: NITRAZEPAM
     Dosage: 5 MG, QD
     Route: 048
     Dates: start: 20140522, end: 20140528
  32. CLOZARIL [Suspect]
     Active Substance: CLOZAPINE
     Indication: SCHIZOPHRENIA, PARANOID TYPE
     Dosage: 12.5 MG, QD
     Route: 048
     Dates: start: 20120831, end: 20120831
  33. CLOZARIL [Suspect]
     Active Substance: CLOZAPINE
     Dosage: 200 MG, QD
     Route: 048
     Dates: start: 20120920, end: 20120920
  34. CLOZARIL [Suspect]
     Active Substance: CLOZAPINE
     Dosage: 600 MG, QD
     Route: 048
     Dates: start: 20130301, end: 20130418
  35. CLOZARIL [Suspect]
     Active Substance: CLOZAPINE
     Dosage: 100 MG, QD
     Route: 048
     Dates: start: 20130614, end: 20130620
  36. CLOZARIL [Suspect]
     Active Substance: CLOZAPINE
     Dosage: 450 MG, QD
     Route: 048
     Dates: start: 20131129, end: 20131219
  37. CLOZARIL [Suspect]
     Active Substance: CLOZAPINE
     Dosage: 500 MG, QD
     Route: 048
     Dates: start: 20131220, end: 20140804
  38. MAGMITT [Concomitant]
     Active Substance: MAGNESIUM OXIDE
     Dosage: 2990 MG, QD
     Route: 048
     Dates: start: 20130301, end: 20130416
  39. URIEF [Concomitant]
     Active Substance: SILODOSIN
     Dosage: 4 MG, QD
     Route: 048
     Dates: start: 20130301, end: 20130416
  40. LONASEN [Concomitant]
     Active Substance: BLONANSERIN
     Indication: SCHIZOPHRENIA, PARANOID TYPE
     Dosage: 24 MG, QD
     Route: 065
     Dates: start: 20120831, end: 20121202
  41. AZILVA [Concomitant]
     Active Substance: AZILSARTAN KAMEDOXOMIL
     Indication: PRODUCT USED FOR UNKNOWN INDICATION
     Dosage: 20 MG, QD
     Route: 048
     Dates: start: 20130830, end: 20140831
  42. CLOZARIL [Suspect]
     Active Substance: CLOZAPINE
     Dosage: 125 MG, QD
     Route: 048
     Dates: start: 20120911, end: 20120913
  43. CLOZARIL [Suspect]
     Active Substance: CLOZAPINE
     Dosage: 400 MG, QD
     Route: 048
     Dates: start: 20121026, end: 20121201
  44. CLOZARIL [Suspect]
     Active Substance: CLOZAPINE
     Dosage: 150 MG, QD
     Route: 048
     Dates: start: 20130628, end: 20130831
  45. CLOZARIL [Suspect]
     Active Substance: CLOZAPINE
     Dosage: 550 MG, QD
     Route: 048
     Dates: start: 20140805, end: 20140831
  46. MAGMITT [Concomitant]
     Active Substance: MAGNESIUM OXIDE
     Dosage: 990 MG, QD
     Route: 048
     Dates: start: 20130813, end: 20131129
  47. ROHYPNOL [Concomitant]
     Active Substance: FLUNITRAZEPAM
     Dosage: 2 MG, QD
     Route: 048
     Dates: start: 20121201
  48. SERENACE [Concomitant]
     Active Substance: HALOPERIDOL
     Indication: SCHIZOPHRENIA, PARANOID TYPE
     Dosage: 9 MG, QD
     Route: 048
     Dates: start: 20120831, end: 20121028
  49. BARNETIL [Concomitant]
     Active Substance: SULTOPRIDE HYDROCHLORIDE
     Dosage: 1000 MG, QD
     Route: 048
     Dates: start: 20120924, end: 20120930
  50. CLOZARIL [Suspect]
     Active Substance: CLOZAPINE
     Dosage: 25 MG, QD
     Route: 048
     Dates: start: 20120901, end: 20120903
  51. CLOZARIL [Suspect]
     Active Substance: CLOZAPINE
     Dosage: 500 MG, QD
     Route: 048
     Dates: start: 20121202, end: 20121206
  52. CLOZARIL [Suspect]
     Active Substance: CLOZAPINE
     Dosage: 25 MG, QD
     Route: 048
     Dates: start: 20130514, end: 20130530
  53. CLOZARIL [Suspect]
     Active Substance: CLOZAPINE
     Dosage: 95 MG, QD
     Route: 048
     Dates: start: 20130607, end: 20130613
  54. DEPAKENE [Concomitant]
     Active Substance: VALPROIC ACID
     Dosage: 800 MG, QD
     Route: 048
     Dates: start: 20130301, end: 20130416
  55. TASMOLIN [Concomitant]
     Active Substance: BIPERIDEN
     Indication: PARKINSONISM
     Dosage: 4 MG, QD
     Route: 048
     Dates: end: 20121111
  56. GASMOTIN [Concomitant]
     Active Substance: MOSAPRIDE CITRATE
     Indication: PRODUCT USED FOR UNKNOWN INDICATION
     Dosage: 1500 MG, QD
     Route: 048
     Dates: start: 20121225
  57. NEMONAPRIDE [Concomitant]
     Active Substance: NEMONAPRIDE
     Dosage: 9 MG, QD
     Route: 048
     Dates: start: 20121112, end: 20121118
  58. BARNETIL [Concomitant]
     Active Substance: SULTOPRIDE HYDROCHLORIDE
     Indication: PRODUCT USED FOR UNKNOWN INDICATION
     Dosage: 1800 MG, QD
     Route: 048
     Dates: start: 20120831, end: 20120916
  59. CLOZARIL [Suspect]
     Active Substance: CLOZAPINE
     Dosage: 50 MG, QD
     Route: 048
     Dates: start: 20120904, end: 20120906
  60. CLOZARIL [Suspect]
     Active Substance: CLOZAPINE
     Dosage: 75 MG, QD
     Route: 048
     Dates: start: 20120907, end: 20120908
  61. CLOZARIL [Suspect]
     Active Substance: CLOZAPINE
     Dosage: 250 MG, QD
     Route: 048
     Dates: start: 20120921, end: 20120927
  62. CLOZARIL [Suspect]
     Active Substance: CLOZAPINE
     Dosage: 300 MG, QD
     Route: 048
     Dates: start: 20120928, end: 20121018
  63. CLOZARIL [Suspect]
     Active Substance: CLOZAPINE
     Dosage: 50 MG, QD
     Route: 048
     Dates: start: 20130531, end: 20130606
  64. CLOZARIL [Suspect]
     Active Substance: CLOZAPINE
     Dosage: 150 MG, QD
     Route: 048
     Dates: start: 20130901, end: 20130918
  65. CLOZARIL [Suspect]
     Active Substance: CLOZAPINE
     Dosage: 300 MG, QD
     Route: 048
     Dates: start: 20130919, end: 20131031
  66. DEPAKENE [Concomitant]
     Active Substance: VALPROIC ACID
     Dosage: 800 MG, QD
     Route: 048
     Dates: start: 20121015
  67. MAGMITT [Concomitant]
     Active Substance: MAGNESIUM OXIDE
     Indication: CONSTIPATION
     Dosage: 1980 MG, QD
     Route: 048
     Dates: end: 20121224
  68. URIEF [Concomitant]
     Active Substance: SILODOSIN
     Dosage: 4 MG, QD
     Route: 048
     Dates: start: 20130502, end: 20140831
  69. TASMOLIN [Concomitant]
     Active Substance: BIPERIDEN
     Dosage: 7 MG, QD
     Route: 048
     Dates: start: 20121112, end: 20121216
  70. TASMOLIN [Concomitant]
     Active Substance: BIPERIDEN
     Dosage: 4 MG, QD
     Route: 048
     Dates: start: 20121217
  71. TASMOLIN [Concomitant]
     Active Substance: BIPERIDEN
     Dosage: 1 MG, QD
     Route: 048
     Dates: start: 20130401, end: 20130407
  72. LONASEN [Concomitant]
     Active Substance: BLONANSERIN
     Dosage: 16 MG, QD
     Route: 048
     Dates: start: 20130527, end: 20130602
  73. BARNETIL [Concomitant]
     Active Substance: SULTOPRIDE HYDROCHLORIDE
     Dosage: 1400 MG, QD
     Route: 048
     Dates: start: 20120917, end: 20120923
  74. LIMAS [Concomitant]
     Active Substance: LITHIUM CARBONATE
     Indication: PROPHYLAXIS
     Dosage: 400 MG, QD
     Route: 048
     Dates: start: 20130517, end: 20140831

REACTIONS (27)
  - Peritonitis [Recovered/Resolved]
  - Blood pressure decreased [Unknown]
  - Neutrophil percentage decreased [Recovered/Resolved]
  - White blood cell count increased [Recovered/Resolved]
  - Neutrophil count increased [Recovered/Resolved]
  - Somnolence [Recovered/Resolved]
  - White blood cell count decreased [Recovered/Resolved]
  - Constipation [Recovered/Resolved]
  - Hypertension [Recovered/Resolved]
  - Hypertension [Recovered/Resolved]
  - Salivary hypersecretion [Not Recovered/Not Resolved]
  - Drug effect incomplete [Recovering/Resolving]
  - Glucose tolerance impaired [Unknown]
  - Weight fluctuation [Recovered/Resolved]
  - Bradykinesia [Recovered/Resolved]
  - Neutrophil percentage decreased [Recovered/Resolved]
  - Neutrophil count increased [Recovered/Resolved]
  - Neutrophil percentage increased [Recovered/Resolved]
  - Acute abdomen [Unknown]
  - Insomnia [Recovered/Resolved]
  - Neutrophil percentage increased [Recovered/Resolved]
  - Appendicitis [Recovered/Resolved]
  - Abdominal pain [Unknown]
  - Decreased appetite [Unknown]
  - Neutrophil count increased [Recovered/Resolved]
  - Neutrophil percentage increased [Unknown]
  - Blood pressure fluctuation [Recovered/Resolved]

NARRATIVE: CASE EVENT DATE: 20120920
